FAERS Safety Report 5095557-4 (Version None)
Quarter: 2006Q3

REPORT INFORMATION
  Report Type: 
  Country: None (occurrence: None)
  Receive Date: 20060901
  Receipt Date: 20060824
  Transmission Date: 20061208
  Serious: Yes (Other)
  Sender: FDA-Public Use
  Company Number: FR-ABBOTT-06P-056-0342083-00

PATIENT
  Sex: Female

DRUGS (4)
  1. HUMIRA [Suspect]
     Indication: RHEUMATOID ARTHRITIS
     Route: 058
     Dates: start: 20060601
  2. LEFLUNOMIDE [Concomitant]
     Indication: RHEUMATOID ARTHRITIS
  3. ANTIBIOTICS [Concomitant]
     Indication: GASTRIC ULCER
     Dates: start: 20060601
  4. PROTON PUMP INHIBITOR [Concomitant]
     Indication: GASTRIC ULCER
     Dates: start: 20060601

REACTIONS (3)
  - GASTRIC DISORDER [None]
  - GASTRIC OPERATION [None]
  - GASTRIC ULCER [None]
